FAERS Safety Report 8868719 (Version 1)
Quarter: 2012Q4

REPORT INFORMATION
  Report Type: 
  Country: US (occurrence: US)
  Receive Date: 20121026
  Receipt Date: 20121026
  Transmission Date: 20130627
  Serious: No
  Sender: FDA-Public Use
  Company Number: US-AMGEN-USASP2012047526

PATIENT
  Age: 55 Year
  Sex: Female
  Weight: 79.37 kg

DRUGS (6)
  1. ENBREL [Suspect]
     Indication: PRODUCT USED FOR UNKNOWN INDICATION
     Dosage: 50 mg, qwk
     Route: 058
  2. CALTRATE + D                       /00944201/ [Concomitant]
     Dosage: 600 UNK, UNK
  3. TRAMADOL HCL [Concomitant]
     Dosage: 50 mg, UNK
  4. VITAMIN D                          /00318501/ [Concomitant]
     Dosage: 400 UNK, UNK
  5. VESICARE [Concomitant]
     Dosage: 5 mg, UNK
  6. MULTIVITAMINS, PLAIN [Concomitant]
     Dosage: UNK

REACTIONS (5)
  - Injection site pain [Unknown]
  - Injection site swelling [Unknown]
  - Injection site pruritus [Unknown]
  - Injection site irritation [Unknown]
  - Hepatic enzyme increased [Unknown]
